FAERS Safety Report 7577827-0 (Version None)
Quarter: 2011Q2

REPORT INFORMATION
  Report Type: 
  Country: None (occurrence: None)
  Receive Date: 20110628
  Receipt Date: 20110616
  Transmission Date: 20111010
  Serious: Yes (Other)
  Sender: FDA-Public Use
  Company Number: PHFR2011GB03278

PATIENT
  Sex: Male

DRUGS (5)
  1. CLOZAPINE [Suspect]
     Dosage: 800 MG, QD
  2. CLOZAPINE [Suspect]
     Indication: SCHIZOPHRENIA
     Dosage: 800 MG DAILY
     Route: 048
     Dates: start: 20051208
  3. HYOSCINE [Concomitant]
     Indication: SALIVARY HYPERSECRETION
  4. HALOPERIDOL [Concomitant]
     Indication: PSYCHOTIC DISORDER
     Dosage: 3 MG DAILY
     Route: 048
     Dates: end: 20110525
  5. OLANZAPINE [Concomitant]
     Indication: PSYCHOTIC DISORDER
     Dosage: 20 MG DAILY

REACTIONS (1)
  - ELECTROCARDIOGRAM QT PROLONGED [None]
